FAERS Safety Report 6965259-5 (Version None)
Quarter: 2010Q3

REPORT INFORMATION
  Report Type: 
  Country: None (occurrence: None)
  Receive Date: 20100901
  Receipt Date: 20100823
  Transmission Date: 20110219
  Serious: Yes (Hospitalization)
  Sender: FDA-Public Use
  Company Number: 2010US2003411

PATIENT
  Age: 23 Year
  Sex: Male

DRUGS (2)
  1. PROGRAF [Suspect]
     Indication: LIVER TRANSPLANT
     Dosage: 6 MG UID/QD, ORAL
     Route: 048
     Dates: start: 20071029
  2. PREDNISONE [Concomitant]

REACTIONS (1)
  - HOSPITALISATION [None]
